FAERS Safety Report 8014065-1 (Version None)
Quarter: 2011Q4

REPORT INFORMATION
  Report Type: 
  Country: None (occurrence: None)
  Receive Date: 20111229
  Receipt Date: 20111107
  Transmission Date: 20120403
  Serious: Yes (Life-Threatening, Hospitalization)
  Sender: FDA-Public Use
  Company Number: SE-ROCHE-1010555

PATIENT
  Age: 58 Year
  Sex: Female
  Weight: 95.5 kg

DRUGS (1)
  1. VEMURAFENIB [Suspect]
     Indication: MALIGNANT MELANOMA
     Route: 048
     Dates: start: 20111031, end: 20111105

REACTIONS (1)
  - TOXICITY TO VARIOUS AGENTS [None]
